FAERS Safety Report 19403344 (Version 1)
Quarter: 2021Q2

REPORT INFORMATION
  Report Type: Spontaneous
  Country: US (occurrence: US)
  Receive Date: 20210610
  Receipt Date: 20210610
  Transmission Date: 20210717
  Serious: No
  Sender: FDA-Public Use
  Company Number: None

PATIENT
  Age: 68 Year
  Sex: Female

DRUGS (1)
  1. CAPECITABINE 500 MG [Suspect]
     Active Substance: CAPECITABINE
     Indication: COLON CANCER
     Dosage: OTHER DOSE:1500AM 1000PM; BID ORAL?
     Route: 048
     Dates: start: 202104

REACTIONS (3)
  - Malaise [None]
  - Nausea [None]
  - Vomiting [None]
